FAERS Safety Report 9788923 (Version 1)
Quarter: 2013Q4

REPORT INFORMATION
  Report Type: Spontaneous
  Country: CN (occurrence: CN)
  Receive Date: 20131230
  Receipt Date: 20131230
  Transmission Date: 20140711
  Serious: Yes (Other)
  Sender: FDA-Public Use
  Company Number: CN-GLAXOSMITHKLINE-B0956092A

PATIENT
  Age: 58 Year
  Sex: Female

DRUGS (3)
  1. SEROXAT [Suspect]
     Indication: ANXIETY
     Dosage: 20MG PER DAY
     Route: 048
     Dates: start: 20131220, end: 20131220
  2. CHINESE MEDICATION [Concomitant]
     Indication: TACHYCARDIA
  3. CHINESE MEDICATION [Concomitant]
     Indication: EXTRASYSTOLES
     Dosage: 6CAP PER DAY

REACTIONS (5)
  - Angina pectoris [Not Recovered/Not Resolved]
  - Insomnia [Not Recovered/Not Resolved]
  - Tinnitus [Not Recovered/Not Resolved]
  - Listless [Unknown]
  - Asthenia [Unknown]
